FAERS Safety Report 17252163 (Version 2)
Quarter: 2020Q4

REPORT INFORMATION
  Report Type: Spontaneous
  Country: US (occurrence: US)
  Receive Date: 20200109
  Receipt Date: 20201123
  Transmission Date: 20210113
  Serious: No
  Sender: FDA-Public Use
  Company Number: US-PFIZER INC-2020009663

PATIENT
  Age: 73 Year
  Sex: Male

DRUGS (1)
  1. PHENYTOIN. [Suspect]
     Active Substance: PHENYTOIN
     Dosage: UNK

REACTIONS (2)
  - Therapeutic product effect variable [Unknown]
  - Drug ineffective [Unknown]
